FAERS Safety Report 12631873 (Version 2)
Quarter: 2016Q3

REPORT INFORMATION
  Report Type: Spontaneous
  Country: US (occurrence: US)
  Receive Date: 20160808
  Receipt Date: 20160808
  Transmission Date: 20161109
  Serious: No
  Sender: FDA-Public Use
  Company Number: US-BEH-2016061294

PATIENT
  Sex: Female
  Weight: 74 kg

DRUGS (23)
  1. HIZENTRA [Suspect]
     Active Substance: HUMAN IMMUNOGLOBULIN G
     Route: 058
  2. AMBIEN [Concomitant]
     Active Substance: ZOLPIDEM TARTRATE
  3. POTASSIUM [Concomitant]
     Active Substance: POTASSIUM
  4. HIZENTRA [Suspect]
     Active Substance: HUMAN IMMUNOGLOBULIN G
     Indication: IMMUNODEFICIENCY COMMON VARIABLE
     Route: 058
     Dates: start: 20140114
  5. ACETAMINOPHEN. [Concomitant]
     Active Substance: ACETAMINOPHEN
  6. ESTRADIOL. [Concomitant]
     Active Substance: ESTRADIOL
  7. LIDOCAINE. [Concomitant]
     Active Substance: LIDOCAINE
  8. AZITHROMYCIN ANHYDROUS. [Concomitant]
     Active Substance: AZITHROMYCIN ANHYDROUS
  9. PROBIOTIC [Concomitant]
     Active Substance: PROBIOTICS NOS
  10. ASPIRIN. [Concomitant]
     Active Substance: ASPIRIN
  11. VITAMIN B [Concomitant]
     Active Substance: VITAMIN B
  12. AZELASTINE [Concomitant]
     Active Substance: AZELASTINE
  13. LEVOTHYROXINE. [Concomitant]
     Active Substance: LEVOTHYROXINE
  14. HIZENTRA [Suspect]
     Active Substance: HUMAN IMMUNOGLOBULIN G
     Route: 058
  15. KEFLEX [Concomitant]
     Active Substance: CEPHALEXIN
  16. ROBAXIN [Concomitant]
     Active Substance: METHOCARBAMOL
  17. NORCO [Concomitant]
     Active Substance: ACETAMINOPHEN\HYDROCODONE BITARTRATE
  18. FLUNISOLIDE. [Concomitant]
     Active Substance: FLUNISOLIDE
  19. DIPHENHYDRAMINE. [Concomitant]
     Active Substance: DIPHENHYDRAMINE
  20. CALTRATE [Concomitant]
     Active Substance: CALCIUM CARBONATE
  21. CLONAZEPAM. [Concomitant]
     Active Substance: CLONAZEPAM
  22. OMEGA [Concomitant]
     Active Substance: CONVALLARIA MAJALIS\CRATAEGUS LAEVIGATA LEAF\PROXYPHYLLINE
  23. OMEPRAZOLE. [Concomitant]
     Active Substance: OMEPRAZOLE

REACTIONS (1)
  - Sinusitis [Unknown]
